FAERS Safety Report 5680874-7 (Version None)
Quarter: 2008Q1

REPORT INFORMATION
  Report Type: 
  Country: None (occurrence: None)
  Receive Date: 20080325
  Receipt Date: 20080319
  Transmission Date: 20080703
  Serious: Yes (Death)
  Sender: FDA-Public Use
  Company Number: CLOF-1000118

PATIENT
  Sex: Female

DRUGS (3)
  1. CLOLAR [Suspect]
     Indication: LEUKAEMIA
  2. ETOPOSIDE [Suspect]
     Indication: LEUKAEMIA
  3. CYCLOPHOSPHAMIDE [Suspect]
     Indication: LEUKAEMIA

REACTIONS (1)
  - CHOLECYSTITIS [None]
